FAERS Safety Report 24694046 (Version 1)
Quarter: 2024Q4

REPORT INFORMATION
  Report Type: Spontaneous
  Country: ES (occurrence: ES)
  Receive Date: 20241204
  Receipt Date: 20241204
  Transmission Date: 20250115
  Serious: Yes (Hospitalization, Other)
  Sender: VALIDUS
  Company Number: ES-VALIDUS PHARMACEUTICALS LLC-ES-VDP-2024-019481

PATIENT

DRUGS (3)
  1. FUROSEMIDE [Suspect]
     Active Substance: FUROSEMIDE
     Indication: Cardiac failure congestive
     Dosage: 40 MG, QD
     Route: 048
     Dates: start: 20231011, end: 20240711
  2. FUROSEMIDE [Suspect]
     Active Substance: FUROSEMIDE
     Dosage: 2.5 -1 -0 TABLETS (THE DOSE HAD BEEN INCREASED COMPARED TO WHAT THE FEMALE PATIENT WAS PREVIOUSLY TA
     Route: 048
     Dates: start: 20240712, end: 20240817
  3. HYDROCHLOROTHIAZIDE [Suspect]
     Active Substance: HYDROCHLOROTHIAZIDE
     Indication: Hypertension
     Dosage: UNK
     Route: 048
     Dates: start: 20240712, end: 20240817

REACTIONS (5)
  - Syncope [Recovered/Resolved]
  - Metabolic alkalosis [Recovered/Resolved]
  - Hypotension [Recovered/Resolved]
  - Hypokalaemia [Recovered/Resolved]
  - Drug interaction [Recovered/Resolved]

NARRATIVE: CASE EVENT DATE: 20240816
